FAERS Safety Report 8044515-6 (Version None)
Quarter: 2012Q1

REPORT INFORMATION
  Report Type: 
  Country: None (occurrence: None)
  Receive Date: 20120113
  Receipt Date: 20120111
  Transmission Date: 20120608
  Serious: Yes (Death)
  Sender: FDA-Public Use
  Company Number: US-PFIZER INC-2008003583

PATIENT
  Age: 50 Year
  Sex: Female

DRUGS (9)
  1. PREGABALIN [Suspect]
     Route: 048
  2. MORPHINE SULFATE [Suspect]
     Route: 048
  3. BENZODIAZEPINE DERIVATIVES [Suspect]
  4. FUROSEMIDE [Suspect]
     Route: 048
  5. THYROID [Suspect]
  6. QUINAPRIL HCL [Suspect]
     Route: 048
  7. THIAZOLIDINEDIONES [Suspect]
     Route: 048
  8. BACLOFEN [Suspect]
     Route: 048
  9. PRAVASTATIN [Suspect]
     Route: 048

REACTIONS (1)
  - DEATH [None]
